FAERS Safety Report 24604355 (Version 1)
Quarter: 2024Q4

REPORT INFORMATION
  Report Type: Spontaneous
  Country: US (occurrence: US)
  Receive Date: 20241111
  Receipt Date: 20241111
  Transmission Date: 20250114
  Serious: No
  Sender: PFIZER
  Company Number: US-PFIZER INC-202400297886

PATIENT
  Sex: Male

DRUGS (1)
  1. ABROCITINIB [Suspect]
     Active Substance: ABROCITINIB
     Indication: Dermatitis atopic
     Dosage: 100 MG, ALTERNATE DAY (QD EVERY OTHER DAY)

REACTIONS (2)
  - Palpitations [Unknown]
  - Off label use [Unknown]
